FAERS Safety Report 21841105 (Version 2)
Quarter: 2023Q1

REPORT INFORMATION
  Report Type: Spontaneous
  Country: US (occurrence: None)
  Receive Date: 20230110
  Receipt Date: 20230127
  Transmission Date: 20230418
  Serious: Yes (Death, Hospitalization)
  Sender: FDA-Public Use
  Company Number: US-FARMAPROD-202301-0008

PATIENT
  Age: 81 Year
  Sex: Female

DRUGS (25)
  1. OXERVATE [Suspect]
     Active Substance: CENEGERMIN-BKBJ
     Indication: Neurotrophic keratopathy
     Route: 047
     Dates: start: 20220928
  2. CRANBERRY [Concomitant]
     Active Substance: CRANBERRY
  3. CALCIUM\CHOLECALCIFEROL [Concomitant]
     Active Substance: CALCIUM\CHOLECALCIFEROL
     Dosage: 600MG-12.5
     Route: 048
  4. ASPIRIN [Concomitant]
     Active Substance: ASPIRIN
     Route: 048
  5. SYSTANE (HYPROMELLOSE 2910 (4000 MPA.S)) [Concomitant]
     Active Substance: HYPROMELLOSE 2910 (4000 MPA.S)
  6. SYSTANE (HYPROMELLOSE 2910 (4000 MPA.S)) [Concomitant]
     Active Substance: HYPROMELLOSE 2910 (4000 MPA.S)
     Dosage: 0.3%-0.4%
  7. VITAMIN B12 [Concomitant]
     Active Substance: CYANOCOBALAMIN
  8. LYSINE [Concomitant]
     Active Substance: LYSINE
  9. CINNAMON [Concomitant]
     Active Substance: CINNAMON
  10. POTASSIUM CHLORIDE [Concomitant]
     Active Substance: POTASSIUM CHLORIDE
  11. FISH OIL [Concomitant]
     Active Substance: FISH OIL
  12. VITAMINS [Concomitant]
     Active Substance: VITAMINS
  13. TRAZODONE HCL [Concomitant]
     Active Substance: TRAZODONE HYDROCHLORIDE
     Route: 048
  14. PLAVIX [Concomitant]
     Active Substance: CLOPIDOGREL BISULFATE
     Route: 048
  15. FUROSEMIDE W/SODIUM CHLORIDE [Concomitant]
     Dosage: 0.9% SODIUM CHLORIDE
  16. FENOFIBRATE [Concomitant]
     Active Substance: FENOFIBRATE
  17. LEVOTHYROXINE [Concomitant]
     Active Substance: LEVOTHYROXINE
  18. METOPROLOL SUCCINATE [Concomitant]
     Active Substance: METOPROLOL SUCCINATE
     Route: 048
  19. LORATADINE [Concomitant]
     Active Substance: LORATADINE
  20. GLIMEPIRIDE [Concomitant]
     Active Substance: GLIMEPIRIDE
     Route: 048
  21. PREDNISONE [Concomitant]
     Active Substance: PREDNISONE
     Route: 048
  22. KEFLEX [Concomitant]
     Active Substance: CEPHALEXIN
     Route: 048
  23. LASIX [Concomitant]
     Active Substance: FUROSEMIDE
     Route: 048
  24. LEVOTHYROXINE [Concomitant]
     Active Substance: LEVOTHYROXINE
     Route: 048
  25. REMICADE [Concomitant]
     Active Substance: INFLIXIMAB

REACTIONS (2)
  - Road traffic accident [Fatal]
  - Spinal fracture [Fatal]

NARRATIVE: CASE EVENT DATE: 20221024
